FAERS Safety Report 9636477 (Version 2)
Quarter: 2013Q4

REPORT INFORMATION
  Report Type: Spontaneous
  Country: CO (occurrence: CO)
  Receive Date: 20131021
  Receipt Date: 20131023
  Transmission Date: 20140711
  Serious: Yes (Death, Hospitalization, Other)
  Sender: FDA-Public Use
  Company Number: CO-009507513-1310COL009068

PATIENT
  Age: 54 Year
  Sex: Female

DRUGS (5)
  1. PEG-INTRON [Suspect]
     Indication: HEPATITIS C
     Dosage: REDIPEN, INJECTION, STRENGTH: 70 MICROGRAM,FREQUENCY: WEEKLY
     Route: 058
     Dates: start: 201310
  2. REBETOL [Suspect]
     Indication: HEPATITIS C
     Dosage: TOTAL DAILY DOSE 1000 MG, FREQUENCY: DAILY
     Route: 048
     Dates: start: 201310
  3. TELAPREVIR [Suspect]
     Indication: HEPATITIS C
     Dosage: UNK
     Dates: start: 201310
  4. MYCOPHENOLATE SODIUM [Concomitant]
     Indication: IMMUNOSUPPRESSION
     Dosage: UNK
  5. CYCLOSPORINE [Concomitant]
     Indication: IMMUNOSUPPRESSION
     Dosage: UNK

REACTIONS (2)
  - Haemorrhage intracranial [Fatal]
  - Endotracheal intubation [Unknown]
